FAERS Safety Report 21010935 (Version 2)
Quarter: 2022Q3

REPORT INFORMATION
  Report Type: Spontaneous
  Country: GB (occurrence: GB)
  Receive Date: 20220627
  Receipt Date: 20220808
  Transmission Date: 20221027
  Serious: Yes (Death, Hospitalization, Other)
  Sender: FDA-Public Use
  Company Number: None

PATIENT

DRUGS (2)
  1. LAMOTRIGINE [Suspect]
     Active Substance: LAMOTRIGINE
     Indication: Partial seizures
     Dosage: 25 MG, QD (50MG AM AND 75MG PM)
     Route: 065
     Dates: start: 20220118
  2. LEVETIRACETAM [Concomitant]
     Active Substance: LEVETIRACETAM
     Indication: Product used for unknown indication
     Dosage: 1.25 G, BID (500MG OM AND 750MG ON)
     Route: 065

REACTIONS (20)
  - Multiple organ dysfunction syndrome [Fatal]
  - Brain oedema [Unknown]
  - Renal failure [Unknown]
  - Respiratory failure [Unknown]
  - Haemophagocytic lymphohistiocytosis [Unknown]
  - Rash erythematous [Unknown]
  - Tachycardia [Unknown]
  - Pyrexia [Unknown]
  - Oropharyngeal pain [Unknown]
  - Decreased appetite [Unknown]
  - Fluid intake reduced [Unknown]
  - Rash [Unknown]
  - Headache [Unknown]
  - Dizziness [Unknown]
  - Arthralgia [Unknown]
  - Photophobia [Unknown]
  - Cough [Unknown]
  - Lethargy [Unknown]
  - Ear pain [Unknown]
  - Swelling face [Unknown]

NARRATIVE: CASE EVENT DATE: 20220306
